FAERS Safety Report 11211280 (Version 1)
Quarter: 2015Q2

REPORT INFORMATION
  Report Type: Report from Study
  Country: NL (occurrence: NL)
  Receive Date: 20150623
  Receipt Date: 20150623
  Transmission Date: 20150821
  Serious: Yes (Death)
  Sender: FDA-Public Use
  Company Number: NL-AMGEN-NLDSL2015060770

PATIENT
  Age: 63 Year

DRUGS (1)
  1. NEULASTA [Suspect]
     Active Substance: PEGFILGRASTIM
     Indication: PROPHYLAXIS
     Dosage: 10 MG/ML WWSP 0.6 ML, UNK
     Route: 065

REACTIONS (1)
  - Death [Fatal]
